FAERS Safety Report 7954279-X (Version None)
Quarter: 2011Q4

REPORT INFORMATION
  Report Type: 
  Country: None (occurrence: None)
  Receive Date: 20111129
  Receipt Date: 20111117
  Transmission Date: 20120403
  Serious: Yes (Hospitalization, Other)
  Sender: FDA-Public Use
  Company Number: 2011SP019410

PATIENT
  Age: 27 Year
  Sex: Female
  Weight: 113.3993 kg

DRUGS (4)
  1. AMBIEN [Concomitant]
  2. SEROQUEL [Concomitant]
  3. NUVARING [Suspect]
     Indication: CONTRACEPTION
     Dates: start: 20030401
  4. NUVARING [Suspect]
     Indication: CONTRACEPTION
     Dates: end: 20090421

REACTIONS (10)
  - ECTOPIC PREGNANCY [None]
  - PULMONARY EMBOLISM [None]
  - THROMBOSIS [None]
  - PLEURAL EFFUSION [None]
  - ABORTION SPONTANEOUS [None]
  - MATERNAL DEATH AFFECTING FOETUS [None]
  - PNEUMONIA [None]
  - PREGNANCY WITH CONTRACEPTIVE DEVICE [None]
  - PARAESTHESIA [None]
  - DIZZINESS [None]
